FAERS Safety Report 8919609 (Version 1)
Quarter: 2012Q4

REPORT INFORMATION
  Report Type: 
  Country: SE (occurrence: SE)
  Receive Date: 20121121
  Receipt Date: 20121121
  Transmission Date: 20130627
  Serious: Yes (Hospitalization)
  Sender: FDA-Public Use
  Company Number: SE-PFIZER INC-2012287223

PATIENT
  Age: 73 Year
  Sex: Male
  Weight: 87.8 kg

DRUGS (15)
  1. GENOTROPIN [Suspect]
     Dosage: 0.4 mg, 1x/day, 7 injections/week
     Route: 058
     Dates: start: 20021125
  2. SELOKEN ZOC [Concomitant]
     Indication: ESSENTIAL HYPERTENSION
     Dosage: UNK
     Dates: start: 19910101
  3. ACTRAPID HUMAN [Concomitant]
     Indication: DIABETES MELLITUS
     Dosage: UNK
     Dates: start: 19960101
  4. BEZALIP [Concomitant]
     Indication: HYPERLIPIDAEMIA
     Dosage: UNK
     Dates: start: 19960101
  5. INSULATARD /OLD FORM/ [Concomitant]
     Indication: DIABETES MELLITUS
     Dosage: UNK
     Dates: start: 19960101
  6. WARAN [Concomitant]
     Indication: EMBOLISM ARTERIAL
     Dosage: UNK
     Dates: start: 19960101
  7. WARAN [Concomitant]
     Indication: THROMBOSIS
  8. TESTOSTERONE [Concomitant]
     Indication: LUTEINIZING HORMONE DEFICIENCY
     Dosage: UNK
     Dates: start: 19970930
  9. TESTOSTERONE [Concomitant]
     Indication: FOLLICLE-STIMULATING HORMONE DEFICIENCY
  10. TESTOSTERONE [Concomitant]
     Indication: TESTICULAR HYPOGONADISM
  11. BENADON ^HOFFMAN^ [Concomitant]
     Indication: VITAMIN DEFICIENCY
     Dosage: UNK
     Dates: start: 19980101
  12. BENERVA [Concomitant]
     Indication: MONONEURITIS
     Dosage: UNK
     Dates: start: 19980101
  13. LOSEC [Concomitant]
     Indication: GASTRITIS
     Dosage: UNK
     Dates: start: 19980101
  14. LOSEC [Concomitant]
     Indication: DUODENITIS
  15. LESTID [Concomitant]
     Indication: HYPERLIPIDAEMIA
     Dosage: UNK
     Dates: start: 20000501

REACTIONS (1)
  - Tachycardia [Unknown]
